FAERS Safety Report 22350679 (Version 3)
Quarter: 2023Q2

REPORT INFORMATION
  Report Type: Report from Study
  Country: US (occurrence: US)
  Receive Date: 20230522
  Receipt Date: 20230621
  Transmission Date: 20230721
  Serious: No
  Sender: FDA-Public Use
  Company Number: US-GILEAD-2023-0624825

PATIENT
  Sex: Male

DRUGS (9)
  1. AMBRISENTAN [Suspect]
     Active Substance: AMBRISENTAN
     Indication: Pulmonary arterial hypertension
     Dosage: 10 MG, QD
     Route: 065
     Dates: start: 20220429
  2. AMBRISENTAN [Suspect]
     Active Substance: AMBRISENTAN
     Indication: Pulmonary arterial hypertension
  3. AMBRISENTAN [Suspect]
     Active Substance: AMBRISENTAN
     Indication: HIV infection
  4. UPTRAVI [Concomitant]
     Active Substance: SELEXIPAG
  5. XARELTO [Concomitant]
     Active Substance: RIVAROXABAN
  6. ADCIRCA [Concomitant]
     Active Substance: TADALAFIL
  7. TYVASO [Concomitant]
     Active Substance: TREPROSTINIL
  8. AMLODIPINE [Concomitant]
     Active Substance: AMLODIPINE BESYLATE
  9. ALYQ [Concomitant]
     Active Substance: TADALAFIL

REACTIONS (4)
  - Eye disorder [Unknown]
  - Blood pressure abnormal [Unknown]
  - Epistaxis [Recovered/Resolved]
  - Off label use [Unknown]
